FAERS Safety Report 18054570 (Version 1)
Quarter: 2020Q3

REPORT INFORMATION
  Report Type: Spontaneous
  Country: US (occurrence: US)
  Receive Date: 20200722
  Receipt Date: 20200722
  Transmission Date: 20201103
  Serious: Yes (Hospitalization, Other)
  Sender: FDA-Public Use
  Company Number: US-PFIZER INC-2020279746

PATIENT
  Age: 56 Year
  Sex: Female
  Weight: 104.31 kg

DRUGS (1)
  1. IBRANCE [Suspect]
     Active Substance: PALBOCICLIB
     Dosage: 100 MG, CYCLIC (21 OF 28 DAYS)
     Route: 048
     Dates: start: 201702

REACTIONS (2)
  - Cerebrovascular accident [Unknown]
  - Communication disorder [Unknown]
